FAERS Safety Report 7116083-4 (Version None)
Quarter: 2010Q4

REPORT INFORMATION
  Report Type: 
  Country: None (occurrence: None)
  Receive Date: 20101122
  Receipt Date: 20101110
  Transmission Date: 20110411
  Serious: Yes (Other)
  Sender: FDA-Public Use
  Company Number: JP-ROCHE-741766

PATIENT
  Age: 50 Year
  Sex: Male

DRUGS (3)
  1. CELLCEPT [Suspect]
     Indication: PROPHYLAXIS AGAINST TRANSPLANT REJECTION
     Dosage: DOSAGE IS UNCERTAIN.
     Route: 048
  2. TACROLIMUS [Concomitant]
     Dosage: DOSAGE IS UNCERTAIN
  3. ADRENAL CORTEX NATURAL GLANDULAR [Concomitant]
     Dosage: DOSAGE IS UNCERTAIN

REACTIONS (1)
  - HYPEROXALURIA [None]
